FAERS Safety Report 12919112 (Version 1)
Quarter: 2016Q4

REPORT INFORMATION
  Report Type: Other
  Country: IT (occurrence: IT)
  Receive Date: 20161108
  Receipt Date: 20161108
  Transmission Date: 20170207
  Serious: Yes (Hospitalization, Other)
  Sender: FDA-Public Use
  Company Number: IT-ORCHID HEALTHCARE-1059319

PATIENT
  Age: 59 Year
  Sex: Male

DRUGS (2)
  1. DIVALPROEX SODIUM. [Suspect]
     Active Substance: DIVALPROEX SODIUM
     Indication: EPILEPSY
     Route: 065
  2. PAROXETINE. [Concomitant]
     Active Substance: PAROXETINE
     Route: 065

REACTIONS (9)
  - Somatic symptom disorder [Recovering/Resolving]
  - Memory impairment [Recovering/Resolving]
  - Parkinsonism [Recovering/Resolving]
  - Weight decreased [Recovering/Resolving]
  - Cognitive disorder [Recovering/Resolving]
  - Pleurothotonus [Recovering/Resolving]
  - Sleep disorder [Recovering/Resolving]
  - Depressed mood [Recovering/Resolving]
  - Dyscalculia [Recovering/Resolving]
